FAERS Safety Report 13614284 (Version 1)
Quarter: 2017Q2

REPORT INFORMATION
  Report Type: Spontaneous
  Country: US (occurrence: US)
  Receive Date: 20170606
  Receipt Date: 20170606
  Transmission Date: 20170830
  Serious: Yes (Other)
  Sender: FDA-Public Use
  Company Number: US-NOVOPROD-548041

PATIENT
  Sex: Female

DRUGS (1)
  1. VICTOZA [Suspect]
     Active Substance: LIRAGLUTIDE
     Indication: DIABETES MELLITUS
     Dosage: UNK
     Route: 058

REACTIONS (8)
  - Abnormal loss of weight [Unknown]
  - Malaise [Unknown]
  - Parosmia [Unknown]
  - Bedridden [Unknown]
  - Feeling abnormal [Unknown]
  - Yellow skin [Unknown]
  - Feeding disorder [Unknown]
  - Vomiting [Unknown]
